FAERS Safety Report 16977333 (Version 3)
Quarter: 2021Q2

REPORT INFORMATION
  Report Type: Report from Study
  Country: DE (occurrence: DE)
  Receive Date: 20191031
  Receipt Date: 20210524
  Transmission Date: 20210716
  Serious: Yes (Hospitalization)
  Sender: FDA-Public Use
  Company Number: DE-AMGEN-DEUNI2019178627

PATIENT
  Age: 57 Year
  Sex: Male
  Weight: 117 kg

DRUGS (76)
  1. PANITUMUMAB [Suspect]
     Active Substance: PANITUMUMAB
     Dosage: 490 MILLIGRAM
     Route: 042
     Dates: start: 20190916
  2. FOLINIC ACID [Suspect]
     Active Substance: LEUCOVORIN
     Dosage: 920 MILLIGRAM
     Route: 065
     Dates: start: 20190701
  3. FLUOROURACIL. [Suspect]
     Active Substance: FLUOROURACIL
     Dosage: 925 MILLIGRAM
     Route: 040
     Dates: start: 20190916
  4. DOXYCYCLIN RATIOPHARM [Concomitant]
     Indication: PROPHYLAXIS
     Dosage: 100 MILLIGRAM, BID
     Route: 048
     Dates: start: 20181214
  5. CLINDAMYCIN RATIOPHARM [Concomitant]
     Active Substance: CLINDAMYCIN PHOSPHATE
     Indication: PROPHYLAXIS
     Dosage: 600 MILLIGRAM, TID
     Route: 048
     Dates: start: 20181119, end: 20181201
  6. PANITUMUMAB [Suspect]
     Active Substance: PANITUMUMAB
     Dosage: 640 MILLIGRAM
     Route: 042
     Dates: start: 20190513
  7. PANITUMUMAB [Suspect]
     Active Substance: PANITUMUMAB
     Dosage: 500 MILLIGRAM
     Route: 042
     Dates: start: 20190819
  8. PANITUMUMAB [Suspect]
     Active Substance: PANITUMUMAB
     Dosage: 480 MILLIGRAM
     Route: 042
     Dates: start: 20190902
  9. FOLINIC ACID [Suspect]
     Active Substance: LEUCOVORIN
     Dosage: 920 MILLIGRAM
     Route: 065
     Dates: start: 20181217
  10. FOLINIC ACID [Suspect]
     Active Substance: LEUCOVORIN
     Dosage: 700 MILLIGRAM
     Route: 065
     Dates: start: 20190320
  11. FOLINIC ACID [Suspect]
     Active Substance: LEUCOVORIN
     Dosage: 900 MILLIGRAM
     Route: 065
     Dates: start: 20190429
  12. FOLINIC ACID [Suspect]
     Active Substance: LEUCOVORIN
     Dosage: 930 MILLIGRAM
     Route: 065
     Dates: start: 20190617
  13. FOLINIC ACID [Suspect]
     Active Substance: LEUCOVORIN
     Dosage: 890 MILLIGRAM
     Route: 065
     Dates: start: 20191202
  14. FLUOROURACIL. [Suspect]
     Active Substance: FLUOROURACIL
     Dosage: 925 MILLIGRAM
     Route: 040
     Dates: start: 20190527
  15. FLUOROURACIL. [Suspect]
     Active Substance: FLUOROURACIL
     Dosage: 5500 MILLIGRAM
     Route: 040
     Dates: start: 20190902
  16. FLUOROURACIL. [Suspect]
     Active Substance: FLUOROURACIL
     Dosage: 925 MILLIGRAM
     Route: 040
     Dates: start: 20191216
  17. GRANISETRON B. BRAUN [Concomitant]
     Active Substance: GRANISETRON HYDROCHLORIDE
     Indication: PROPHYLACTIC CHEMOTHERAPY
     Dosage: 1 MILLIGRAM, CYCLICAL
     Route: 042
     Dates: start: 20181022
  18. ERYTHROMYCIN. [Concomitant]
     Active Substance: ERYTHROMYCIN
     Indication: PROPHYLAXIS
     Dosage: 1 UNK, AS NECESSARY
     Route: 061
     Dates: start: 20181214
  19. PANITUMUMAB [Suspect]
     Active Substance: PANITUMUMAB
     Dosage: 370 MILLIGRAM
     Route: 042
     Dates: start: 20190320
  20. PANITUMUMAB [Suspect]
     Active Substance: PANITUMUMAB
     Dosage: 700 MILLIGRAM
     Route: 042
     Dates: start: 20190401
  21. PANITUMUMAB [Suspect]
     Active Substance: PANITUMUMAB
     Dosage: 440 MILLIGRAM
     Route: 042
     Dates: start: 20191014
  22. FOLINIC ACID [Suspect]
     Active Substance: LEUCOVORIN
     Dosage: 920 MILLIGRAM
     Route: 065
     Dates: start: 20190527
  23. OXALIPLATIN. [Suspect]
     Active Substance: OXALIPLATIN
     Dosage: 190 MILLIGRAM
     Route: 065
     Dates: start: 20190429
  24. ALLOPURINOL RATIOPHARM [Concomitant]
     Active Substance: ALLOPURINOL
     Indication: BLOOD URIC ACID INCREASED
     Dosage: 150 MILLIGRAM, QD
     Route: 048
     Dates: start: 19980615
  25. VELMETIA [Concomitant]
     Active Substance: METFORMIN\SITAGLIPTIN
     Indication: DIABETES MELLITUS
     Dosage: 1000 MILLIGRAM, QD, BID
     Route: 048
     Dates: start: 20120615
  26. AMLODIPIN RATIOPHARM [Concomitant]
     Active Substance: AMLODIPINE MALEATE
     Indication: PROPHYLAXIS
  27. BETAGALEN [Concomitant]
     Indication: RASH
     Dosage: 0.1 UNK, AS NECESSARY
     Route: 061
     Dates: start: 20190527
  28. PANITUMUMAB [Suspect]
     Active Substance: PANITUMUMAB
     Dosage: 460 MILLIGRAM
     Route: 042
     Dates: start: 20190527
  29. FOLINIC ACID [Suspect]
     Active Substance: LEUCOVORIN
     Dosage: 195 MILLIGRAM
     Route: 065
     Dates: start: 20181203
  30. FOLINIC ACID [Suspect]
     Active Substance: LEUCOVORIN
     Dosage: 900 MILLIGRAM
     Route: 065
     Dates: start: 20191014
  31. FLUOROURACIL. [Suspect]
     Active Substance: FLUOROURACIL
     Dosage: 900 MILLIGRAM
     Route: 040
     Dates: start: 20190429
  32. FLUOROURACIL. [Suspect]
     Active Substance: FLUOROURACIL
     Dosage: 890 MILLIGRAM
     Route: 040
     Dates: start: 20191202
  33. DEXAMETHASON JENAPHARM [Concomitant]
     Active Substance: DEXAMETHASONE
     Indication: PROPHYLACTIC CHEMOTHERAPY
     Dosage: 4?8 MILLIGRAM, CYCLICAL
     Dates: start: 20181022
  34. CALCIUM D3 [Concomitant]
     Active Substance: CALCIUM\CHOLECALCIFEROL
     Indication: PROPHYLAXIS
     Dosage: 500 MILLIGRAM, BID
     Route: 048
     Dates: start: 20190418
  35. PANITUMUMAB [Suspect]
     Active Substance: PANITUMUMAB
     Dosage: 480 MILLIGRAM
     Route: 042
     Dates: start: 20190930
  36. FOLINIC ACID [Suspect]
     Active Substance: LEUCOVORIN
     Dosage: 930 MILLIGRAM
     Route: 065
     Dates: start: 20200113
  37. FOLINIC ACID [Suspect]
     Active Substance: LEUCOVORIN
     Dosage: 925 MILLIGRAM
     Route: 065
     Dates: start: 20200127
  38. FLUOROURACIL. [Suspect]
     Active Substance: FLUOROURACIL
     Dosage: 700 MILLIGRAM
     Route: 040
     Dates: start: 20190320
  39. FLUOROURACIL. [Suspect]
     Active Substance: FLUOROURACIL
     Dosage: 900 MILLIGRAM
     Route: 040
     Dates: start: 20191014
  40. FLUOROURACIL. [Suspect]
     Active Substance: FLUOROURACIL
     Dosage: 5600 MILLIGRAM
     Route: 042
     Dates: start: 20190401
  41. FLUOROURACIL. [Suspect]
     Active Substance: FLUOROURACIL
     Dosage: 5450 MILLIGRAM
     Route: 042
     Dates: start: 20190429
  42. FLUOROURACIL. [Suspect]
     Active Substance: FLUOROURACIL
     Dosage: 5400 MILLIGRAM
     Route: 042
     Dates: start: 20191014
  43. OXALIPLATIN. [Suspect]
     Active Substance: OXALIPLATIN
     Dosage: 150 MILLIGRAM
     Route: 065
     Dates: start: 20190320
  44. ALLOPURINOL RATIOPHARM [Concomitant]
     Active Substance: ALLOPURINOL
     Indication: PROPHYLAXIS
  45. LANTUS [Concomitant]
     Active Substance: INSULIN GLARGINE
     Indication: DIABETES MELLITUS
     Dosage: 6 UNK, QD
     Route: 058
     Dates: start: 20190115
  46. LIQUIFILM [Concomitant]
     Indication: PROPHYLAXIS
     Dosage: 1 UNK, AS NECESSARY
     Route: 061
     Dates: start: 20181214
  47. METRONIDAZOLUM [Concomitant]
     Active Substance: METRONIDAZOLE
     Indication: RASH
     Dosage: 1 UNK, AS NECESSARY
     Route: 061
     Dates: start: 20190328
  48. HYLO?VISION [Concomitant]
     Active Substance: HYALURONATE SODIUM
     Indication: EYE DISORDER PROPHYLAXIS
     Dosage: 1 UNK, BID
     Route: 061
     Dates: start: 20190729
  49. PANITUMUMAB [Suspect]
     Active Substance: PANITUMUMAB
     Dosage: 470 MILLIGRAM
     Route: 042
     Dates: start: 20190701
  50. FOLINIC ACID [Suspect]
     Active Substance: LEUCOVORIN
     Dosage: 930 MILLIGRAM
     Route: 065
     Dates: start: 20190401
  51. FLUOROURACIL. [Suspect]
     Active Substance: FLUOROURACIL
     Indication: COLORECTAL CANCER METASTATIC
     Dosage: 925 MILLIGRAM
     Route: 040
     Dates: start: 20181119
  52. FLUOROURACIL. [Suspect]
     Active Substance: FLUOROURACIL
     Dosage: 4300 MILLIGRAM
     Route: 042
     Dates: start: 20190320
  53. FLUOROURACIL. [Suspect]
     Active Substance: FLUOROURACIL
     Dosage: 5500 MILLIGRAM
     Route: 042
     Dates: start: 20190527
  54. FLUOROURACIL. [Suspect]
     Active Substance: FLUOROURACIL
     Dosage: 925 MILLIGRAM
     Route: 042
     Dates: start: 20190902
  55. OXALIPLATIN. [Suspect]
     Active Substance: OXALIPLATIN
     Dosage: 195 MILLIGRAM
     Route: 065
     Dates: start: 20190401
  56. METRONIDAZOLE [METRONIDAZOLE SODIUM] [Concomitant]
     Indication: SKIN DISORDER PROPHYLAXIS
     Dosage: 1 MILLIGRAM, AS NECESSARY
     Route: 061
     Dates: start: 20190218
  57. PANITUMUMAB [Suspect]
     Active Substance: PANITUMUMAB
     Indication: COLORECTAL CANCER METASTATIC
     Dosage: 700 MILLIGRAM
     Route: 042
     Dates: start: 20181119
  58. FOLINIC ACID [Suspect]
     Active Substance: LEUCOVORIN
     Dosage: 920 MILLIGRAM
     Route: 065
     Dates: start: 20191216
  59. FLUOROURACIL. [Suspect]
     Active Substance: FLUOROURACIL
     Dosage: 5350 MILLIGRAM
     Route: 042
     Dates: start: 20191202
  60. FLUOROURACIL. [Suspect]
     Active Substance: FLUOROURACIL
     Dosage: 925 MILLIGRAM
     Route: 042
     Dates: start: 20191230
  61. GRANISETRON ACTAVIS [Concomitant]
     Indication: PROPHYLACTIC CHEMOTHERAPY
     Dosage: 1?2 MILLIGRAM CYCLICAL
     Route: 048
     Dates: start: 20181022, end: 20200127
  62. ERYTHROMYCINUM [ERYTHROMYCIN] [Concomitant]
     Active Substance: ERYTHROMYCIN
     Indication: RASH
     Dosage: 1 UNK, AS NECESSARY
     Route: 061
     Dates: start: 20190306
  63. DOXYCYCLIN [DOXYCYCLINE] [Concomitant]
     Active Substance: DOXYCYCLINE
     Indication: RASH
     Dosage: 100 MILLIGRAM, BID
     Route: 048
     Dates: start: 20190315
  64. POLYSORBATE 20. [Concomitant]
     Active Substance: POLYSORBATE 20
     Indication: RASH
     Dosage: 1 UNK, AS NECESSARY
     Route: 061
     Dates: start: 20190328
  65. FOLINIC ACID [Suspect]
     Active Substance: LEUCOVORIN
     Indication: COLORECTAL CANCER METASTATIC
     Dosage: 920 MILLIGRAM
     Route: 065
     Dates: start: 20181119
  66. FLUOROURACIL. [Suspect]
     Active Substance: FLUOROURACIL
     Dosage: 925 MILLIGRAM
     Route: 040
     Dates: start: 20190401
  67. FLUOROURACIL. [Suspect]
     Active Substance: FLUOROURACIL
     Dosage: 5500 MILLIGRAM
     Route: 042
     Dates: start: 20181119
  68. FLUOROURACIL. [Suspect]
     Active Substance: FLUOROURACIL
     Dosage: 5500 MILLIGRAM
     Route: 042
     Dates: start: 20190916
  69. FLUOROURACIL. [Suspect]
     Active Substance: FLUOROURACIL
     Dosage: 5500 MILLIGRAM
     Route: 042
     Dates: start: 20191216
  70. OXALIPLATIN. [Suspect]
     Active Substance: OXALIPLATIN
     Indication: COLORECTAL CANCER METASTATIC
     Dosage: 195 MILLIGRAM
     Route: 065
     Dates: start: 20181119
  71. METFORMIN [Concomitant]
     Active Substance: METFORMIN HYDROCHLORIDE
     Indication: DIABETES MELLITUS
     Dosage: 50?1000 MILLIGRAM, BID
  72. CELESTAN [BETAMETHASONE] [Concomitant]
     Indication: PROPHYLAXIS
     Dosage: 100 MILLIGRAM, AS NECESSARY
     Route: 061
     Dates: start: 20190304
  73. RAMILICH [Concomitant]
     Active Substance: RAMIPRIL
     Indication: HYPERTENSION
     Dosage: 5 MILLIGRAM, QD
     Route: 048
     Dates: start: 20100615, end: 20190420
  74. RAMILICH [Concomitant]
     Active Substance: RAMIPRIL
     Indication: PROPHYLAXIS
  75. AMLODIPIN RATIOPHARM [Concomitant]
     Active Substance: AMLODIPINE MALEATE
     Indication: HYPERTENSION
     Dosage: 5 MILLIGRAM, QD
     Route: 048
     Dates: start: 20100615, end: 20190420
  76. FORTIMEL [Concomitant]
     Active Substance: DIETARY SUPPLEMENT
     Indication: PROPHYLAXIS
     Dosage: 1 UNK, TID
     Route: 048
     Dates: start: 20191014

REACTIONS (1)
  - Functional gastrointestinal disorder [Recovering/Resolving]

NARRATIVE: CASE EVENT DATE: 20191022
